FAERS Safety Report 9792027 (Version 2)
Quarter: 2014Q1

REPORT INFORMATION
  Report Type: Spontaneous
  Country: RS (occurrence: RS)
  Receive Date: 20140102
  Receipt Date: 20140121
  Transmission Date: 20141002
  Serious: Yes (Life-Threatening, Hospitalization, Other)
  Sender: FDA-Public Use
  Company Number: RS-JNJFOC-20131216970

PATIENT
  Age: 55 Year
  Sex: Male

DRUGS (7)
  1. XARELTO [Suspect]
     Indication: EMBOLISM VENOUS
     Route: 048
     Dates: start: 20131216
  2. XARELTO [Suspect]
     Indication: EMBOLISM VENOUS
     Route: 048
     Dates: start: 20131220, end: 20131222
  3. XARELTO [Suspect]
     Indication: PULMONARY EMBOLISM
     Route: 048
     Dates: start: 20131220, end: 20131222
  4. XARELTO [Suspect]
     Indication: PULMONARY EMBOLISM
     Route: 048
     Dates: start: 20131216
  5. TISSUE PLASMINOGEN ACTIVATOR, RECOMBINATIVE [Concomitant]
     Route: 065
  6. HEPARIN [Concomitant]
     Indication: PULMONARY EMBOLISM
     Route: 065
     Dates: start: 20131215
  7. ACTILYSE [Concomitant]
     Route: 042

REACTIONS (2)
  - Retroperitoneal haemorrhage [Recovered/Resolved]
  - Thrombocytopenia [Recovering/Resolving]
